FAERS Safety Report 11532123 (Version 1)
Quarter: 2015Q3

REPORT INFORMATION
  Report Type: Spontaneous
  Country: US (occurrence: US)
  Receive Date: 20150903
  Receipt Date: 20150903
  Transmission Date: 20151125
  Serious: No
  Sender: FDA-Public Use
  Company Number: US-ELI_LILLY_AND_COMPANY-US201112003852

PATIENT
  Age: 78 Year
  Sex: Female

DRUGS (1)
  1. HUMALOG [Suspect]
     Active Substance: INSULIN LISPRO
     Indication: TYPE 1 DIABETES MELLITUS
     Dosage: UNK, TID
     Route: 065

REACTIONS (11)
  - Vomiting [Unknown]
  - General physical health deterioration [Unknown]
  - Blood glucose fluctuation [Unknown]
  - Confusional state [Unknown]
  - Nausea [Unknown]
  - Malaise [Unknown]
  - Visual acuity reduced [Unknown]
  - Disturbance in attention [Unknown]
  - General physical condition abnormal [Unknown]
  - Blood glucose decreased [Recovering/Resolving]
  - Skin discolouration [Unknown]

NARRATIVE: CASE EVENT DATE: 20111220
